FAERS Safety Report 4639914-6 (Version None)
Quarter: 2005Q2

REPORT INFORMATION
  Report Type: 
  Country: None (occurrence: None)
  Receive Date: 20050420
  Receipt Date: 20040311
  Transmission Date: 20051028
  Serious: Yes (Hospitalization)
  Sender: FDA-Public Use
  Company Number: 200410874JP

PATIENT
  Age: 64 Year
  Sex: Female
  Weight: 35 kg

DRUGS (5)
  1. ARAVA [Suspect]
     Indication: RHEUMATOID ARTHRITIS
     Route: 048
     Dates: start: 20040115, end: 20040211
  2. PREDNISOLONE [Concomitant]
     Indication: ANTIINFLAMMATORY THERAPY
     Route: 048
  3. MUCOSTA [Concomitant]
     Indication: PROPHYLAXIS
     Route: 048
  4. TAKEPRON [Concomitant]
     Indication: REFLUX OESOPHAGITIS
     Route: 048
  5. METHOTREXATE [Concomitant]
     Dosage: DOSE: 6MG/WEEK
     Dates: start: 20030206, end: 20030903

REACTIONS (4)
  - DIARRHOEA [None]
  - GASTROINTESTINAL HAEMORRHAGE [None]
  - HYPERTENSION [None]
  - MELAENA [None]
